FAERS Safety Report 8193119-3 (Version None)
Quarter: 2012Q1

REPORT INFORMATION
  Report Type: 
  Country: None (occurrence: None)
  Receive Date: 20120308
  Receipt Date: 20120308
  Transmission Date: 20120608
  Serious: Yes (Hospitalization)
  Sender: FDA-Public Use
  Company Number: None

PATIENT
  Age: 57 Year
  Sex: Male
  Weight: 84 kg

DRUGS (1)
  1. RIVAROXABAN [Suspect]
     Indication: THROMBOSIS PROPHYLAXIS
     Dosage: 10MG
     Route: 048
     Dates: start: 20120306, end: 20120307

REACTIONS (1)
  - PULMONARY EMBOLISM [None]
